FAERS Safety Report 9832674 (Version 1)
Quarter: 2014Q1

REPORT INFORMATION
  Report Type: Report from Study
  Country: US (occurrence: US)
  Receive Date: 20140121
  Receipt Date: 20140121
  Transmission Date: 20141002
  Serious: Yes (Hospitalization)
  Sender: FDA-Public Use
  Company Number: US-IAC JAPAN XML-USA-2014-0110327

PATIENT
  Sex: Male

DRUGS (1)
  1. BTDS PATCH [Suspect]
     Indication: PAIN
     Dosage: TWO,5 MCG/HR, WEEKLY
     Route: 062
     Dates: start: 201311

REACTIONS (3)
  - Investigation [Unknown]
  - Intentional drug misuse [Unknown]
  - Drug ineffective [Unknown]
